FAERS Safety Report 5657677-2 (Version None)
Quarter: 2008Q1

REPORT INFORMATION
  Report Type: 
  Country: None (occurrence: None)
  Receive Date: 20080310
  Receipt Date: 20080304
  Transmission Date: 20080703
  Serious: Yes (Other)
  Sender: FDA-Public Use
  Company Number: BE-BOEHRINGER INGELHEIM GMBH, GERMANY-2008-BP-03244RO

PATIENT
  Age: 54 Year
  Sex: Female

DRUGS (3)
  1. AZATHIOPRINE [Suspect]
     Indication: CROHN'S DISEASE
     Route: 048
  2. AZATHIOPRINE [Suspect]
  3. METHOTREXATE [Concomitant]
     Indication: CROHN'S DISEASE
     Route: 030

REACTIONS (2)
  - COLITIS [None]
  - HYPERSENSITIVITY [None]
